FAERS Safety Report 8632326 (Version 2)
Quarter: 2014Q1

REPORT INFORMATION
  Report Type: Spontaneous
  Country: US (occurrence: US)
  Receive Date: 20120625
  Receipt Date: 20140221
  Transmission Date: 20141002
  Serious: Yes (Disabling, Congenital Anomaly, Other)
  Sender: FDA-Public Use
  Company Number: US-PFIZER INC-2012148600

PATIENT
  Sex: Male

DRUGS (14)
  1. ZOLOFT [Suspect]
     Indication: DEPRESSION
     Dosage: 100 MG, 1X/DAY
     Route: 064
     Dates: start: 200211, end: 200309
  2. WELLBUTRIN [Concomitant]
     Indication: DEPRESSION
     Dosage: UNK
     Route: 064
  3. PRENATAL VITAMINS [Concomitant]
     Indication: NUTRITIONAL SUPPLEMENTATION
     Dosage: UNK
     Route: 064
  4. TYLENOL COLD [Concomitant]
     Indication: NASOPHARYNGITIS
     Dosage: UNK, AS NEEDED
     Route: 064
  5. IBUPROFEN [Concomitant]
     Indication: HEADACHE
     Dosage: UNK, AS NEEDED
     Route: 064
  6. IBUPROFEN [Concomitant]
     Indication: PYREXIA
  7. METFORMIN [Concomitant]
     Indication: DIABETES MELLITUS
     Dosage: 500 MG, 1-2 TIMES DAILY
     Route: 064
     Dates: start: 20040630, end: 200407
  8. PRECARE CAPLET [Concomitant]
     Indication: PREGNANCY
     Dosage: UNK, CAPLET
     Route: 064
     Dates: start: 200405
  9. CHERATUSSIN AC [Concomitant]
     Indication: COUGH
     Dosage: ONE TEASPOON, 4X/DAY
     Route: 064
     Dates: start: 200312
  10. AMOXICILLIN [Concomitant]
     Indication: INFECTION
     Dosage: 500 MG, 3X/DAY
     Route: 064
     Dates: start: 200312
  11. TRIMETHOBENZAMIDE [Concomitant]
     Indication: NAUSEA
     Dosage: 200 MG, 3X/DAY
     Route: 064
     Dates: start: 200312
  12. CYCLOBENZAPRINE [Concomitant]
     Indication: MUSCLE RELAXANT THERAPY
     Dosage: 10 MG, 3X/DAY
     Route: 064
     Dates: start: 200312
  13. BUPROPION SR [Concomitant]
     Indication: DEPRESSION
     Dosage: 150 MG, UNK
     Route: 064
     Dates: start: 200405
  14. NITROFURANTOIN MONO/MAC [Concomitant]
     Indication: ANTIBIOTIC THERAPY
     Dosage: 100 MG, 2X/DAY
     Route: 064
     Dates: start: 200408

REACTIONS (9)
  - Maternal exposure during pregnancy [Unknown]
  - Transposition of the great vessels [Unknown]
  - Ventricular septal defect [Unknown]
  - Patent ductus arteriosus [Unknown]
  - Coronary artery stenosis [Unknown]
  - Hypoplastic left heart syndrome [Unknown]
  - Pulmonary artery atresia [Unknown]
  - Atrial septal defect [Unknown]
  - Congenital anomaly [Unknown]
